FAERS Safety Report 11755026 (Version 1)
Quarter: 2015Q4

REPORT INFORMATION
  Report Type: Spontaneous
  Country: PE (occurrence: PE)
  Receive Date: 20151119
  Receipt Date: 20151119
  Transmission Date: 20160304
  Serious: Yes (Other)
  Sender: FDA-Public Use
  Company Number: PE-PFIZER INC-2015384126

PATIENT
  Age: 72 Year
  Sex: Male

DRUGS (1)
  1. CARDURA XL [Suspect]
     Active Substance: DOXAZOSIN MESYLATE
     Indication: PROSTATIC DISORDER
     Dosage: UNK

REACTIONS (2)
  - Diabetes mellitus [Unknown]
  - Tuberculosis [Unknown]
